FAERS Safety Report 4965986-5 (Version None)
Quarter: 2006Q2

REPORT INFORMATION
  Report Type: 
  Country: None (occurrence: None)
  Receive Date: 20060407
  Receipt Date: 20060308
  Transmission Date: 20061013
  Serious: Yes (Hospitalization)
  Sender: FDA-Public Use
  Company Number: 2006UW04238

PATIENT
  Age: 15135 Day
  Sex: Female

DRUGS (10)
  1. SEROQUEL [Suspect]
     Indication: BIPOLAR I DISORDER
     Route: 048
     Dates: start: 20051114, end: 20051101
  2. SEROQUEL [Suspect]
     Route: 048
     Dates: start: 20051116, end: 20051101
  3. SEROQUEL [Suspect]
     Route: 048
     Dates: start: 20051118, end: 20051101
  4. SEROQUEL [Suspect]
     Route: 048
     Dates: start: 20060206, end: 20060101
  5. SEROQUEL [Suspect]
     Route: 048
     Dates: start: 20060306, end: 20060301
  6. ZYPREXA [Concomitant]
     Route: 048
     Dates: start: 20031030, end: 20051113
  7. VALCOTE [Concomitant]
     Route: 048
     Dates: start: 20031030, end: 20051113
  8. GROVEN [Concomitant]
     Route: 048
     Dates: start: 20050329, end: 20051113
  9. DORMICUM [Concomitant]
     Route: 048
     Dates: start: 20060108, end: 20060210
  10. ESCITALOPRAM OXALATE [Concomitant]
     Route: 048
     Dates: start: 20060206, end: 20060221

REACTIONS (5)
  - DEPRESSION [None]
  - HALLUCINATION [None]
  - PARANOIA [None]
  - PERSECUTORY DELUSION [None]
  - PSYCHOTIC DISORDER [None]
